FAERS Safety Report 18706012 (Version 1)
Quarter: 2021Q1

REPORT INFORMATION
  Report Type: Report from Study
  Country: US (occurrence: US)
  Receive Date: 20210106
  Receipt Date: 20210106
  Transmission Date: 20210419
  Serious: Yes (Other)
  Sender: FDA-Public Use
  Company Number: US-GLAXOSMITHKLINE-US2020AMR244388

PATIENT
  Age: 65 Year
  Sex: Female

DRUGS (3)
  1. NIRAPARIB [Suspect]
     Active Substance: NIRAPARIB
     Dosage: 100 MG, QD
     Dates: start: 20201209
  2. NIRAPARIB [Suspect]
     Active Substance: NIRAPARIB
     Indication: OVARIAN CANCER
     Dosage: 100 MG, QD (EVERY MORNING)
     Dates: start: 20201119
  3. NIRAPARIB [Suspect]
     Active Substance: NIRAPARIB
     Dosage: 200 MG, QD
     Dates: start: 20201127, end: 202012

REACTIONS (14)
  - Malignant neoplasm progression [Unknown]
  - Pain in extremity [Unknown]
  - Condition aggravated [Unknown]
  - Hallucination [Unknown]
  - Insomnia [Not Recovered/Not Resolved]
  - Headache [Not Recovered/Not Resolved]
  - Gait disturbance [Unknown]
  - Muscle twitching [Not Recovered/Not Resolved]
  - Abnormal dreams [Unknown]
  - Decreased appetite [Unknown]
  - Product dose omission issue [Unknown]
  - Constipation [Unknown]
  - Gastrointestinal pain [Unknown]
  - Dizziness postural [Not Recovered/Not Resolved]

NARRATIVE: CASE EVENT DATE: 202011
